FAERS Safety Report 6157382-2 (Version None)
Quarter: 2009Q2

REPORT INFORMATION
  Report Type: 
  Country: None (occurrence: None)
  Receive Date: 20090416
  Receipt Date: 20090406
  Transmission Date: 20091009
  Serious: Yes (Other)
  Sender: FDA-Public Use
  Company Number: CA-PFIZER INC-2009195117

PATIENT

DRUGS (2)
  1. LIPITOR [Suspect]
     Dosage: 40 MG, 1X/DAY
  2. LIPITOR [Suspect]
     Dosage: 80 MG, 1X/DAY

REACTIONS (2)
  - MYALGIA [None]
  - MYOCARDIAL INFARCTION [None]
